FAERS Safety Report 5179356-0 (Version None)
Quarter: 2006Q4

REPORT INFORMATION
  Report Type: 
  Country: None (occurrence: None)
  Receive Date: 20061211
  Receipt Date: 20061130
  Transmission Date: 20070319
  Serious: Yes (Death, Hospitalization)
  Sender: FDA-Public Use
  Company Number: 230715

PATIENT
  Age: 59 Year
  Sex: Female

DRUGS (10)
  1. RAPTIVA [Suspect]
     Indication: PSORIASIS
     Dosage: 80 MG, 1/WEEK, SUBCUTANEOUS
     Route: 058
     Dates: start: 20051201
  2. CEFTIN [Concomitant]
  3. ZETIA [Concomitant]
  4. LIPITOR [Concomitant]
  5. ALLEGRA [Concomitant]
  6. PLAVIX [Concomitant]
  7. PREMARIN [Concomitant]
  8. FLONASE [Concomitant]
  9. MACRODANTIN [Concomitant]
  10. PHENAZOPYRIDINE HCL TAB [Concomitant]

REACTIONS (1)
  - HAEMOLYTIC ANAEMIA [None]
